FAERS Safety Report 5972483-7 (Version None)
Quarter: 2008Q4

REPORT INFORMATION
  Report Type: 
  Country: None (occurrence: None)
  Receive Date: 20081201
  Receipt Date: 20081125
  Transmission Date: 20090506
  Serious: Yes (Other)
  Sender: FDA-Public Use
  Company Number: A0758122A

PATIENT
  Sex: Male

DRUGS (15)
  1. ADVAIR HFA [Suspect]
     Indication: CHRONIC OBSTRUCTIVE PULMONARY DISEASE
     Dosage: 1PUFF TWICE PER DAY
     Route: 055
     Dates: end: 20081006
  2. METFORMIN HCL [Concomitant]
  3. LANTUS [Concomitant]
  4. NOVOLOG [Concomitant]
  5. JANUVIA [Concomitant]
  6. DIOVAN [Concomitant]
  7. DIGOXIN [Concomitant]
  8. FUROSEMIDE [Concomitant]
  9. LIPITOR [Concomitant]
  10. COREG [Concomitant]
  11. PLAVIX [Concomitant]
  12. IMDUR [Concomitant]
  13. NEXIUM [Concomitant]
  14. ALOPURINOL [Concomitant]
  15. ALLEGRA [Concomitant]

REACTIONS (3)
  - DYSPHONIA [None]
  - LARYNGEAL OEDEMA [None]
  - OROPHARYNGEAL PAIN [None]
